FAERS Safety Report 16241279 (Version 1)
Quarter: 2019Q2

REPORT INFORMATION
  Report Type: Spontaneous
  Country: US (occurrence: US)
  Receive Date: 20190426
  Receipt Date: 20190426
  Transmission Date: 20190711
  Serious: Yes (Other)
  Sender: FDA-Public Use
  Company Number: US-INCYTE CORPORATION-2019IN003995

PATIENT

DRUGS (1)
  1. JAKAFI [Suspect]
     Active Substance: RUXOLITINIB
     Indication: POLYCYTHAEMIA VERA
     Dosage: UNK
     Route: 065

REACTIONS (12)
  - Weight decreased [Unknown]
  - Meningitis cryptococcal [Recovering/Resolving]
  - Breath sounds abnormal [Unknown]
  - Pyrexia [Unknown]
  - Lethargy [Unknown]
  - Glossodynia [Unknown]
  - Tongue ulceration [Unknown]
  - Tachycardia [Unknown]
  - Headache [Unknown]
  - Abdominal tenderness [Unknown]
  - Histoplasmosis disseminated [Recovering/Resolving]
  - Somnolence [Unknown]
